FAERS Safety Report 15431357 (Version 1)
Quarter: 2018Q4

REPORT INFORMATION
  Report Type: Spontaneous
  Country: IT (occurrence: IT)
  Receive Date: 20180926
  Receipt Date: 20180926
  Transmission Date: 20190204
  Serious: Yes (Other)
  Sender: FDA-Public Use
  Company Number: IT-TEVA-2018-IT-958592

PATIENT
  Age: 58 Year
  Sex: Female
  Weight: 70 kg

DRUGS (2)
  1. AMOXICILLIN W/CLAVULANIC ACIDAMOXICILLINA E ACIDO CLAVULANICO TEVA GEN [Suspect]
     Active Substance: AMOXICILLIN\CLAVULANIC ACID
     Indication: ANTIBIOTIC PROPHYLAXIS
     Dosage: 2 DOSAGE FORMS DAILY;
     Route: 048
     Dates: start: 20180727, end: 20180730
  2. COTAREG 160 MG/12,5 MG COMPRESSE RIVESTITE CON FILM [Concomitant]
     Route: 065

REACTIONS (2)
  - Laryngeal oedema [Recovered/Resolved]
  - Paraesthesia oral [Recovered/Resolved]

NARRATIVE: CASE EVENT DATE: 20180730
